FAERS Safety Report 13591525 (Version 1)
Quarter: 2017Q2

REPORT INFORMATION
  Report Type: Spontaneous
  Country: US (occurrence: US)
  Receive Date: 20170529
  Receipt Date: 20170529
  Transmission Date: 20170830
  Serious: No
  Sender: FDA-Public Use
  Company Number: US-PFIZER INC-2017232003

PATIENT
  Age: 45 Year
  Sex: Male

DRUGS (1)
  1. SUTENT [Suspect]
     Active Substance: SUNITINIB MALATE
     Dosage: 70 MG, DAILY
     Route: 048

REACTIONS (6)
  - Intentional product misuse [Unknown]
  - Pyrexia [Unknown]
  - Prescribed overdose [Unknown]
  - Malaise [Unknown]
  - Weight increased [Unknown]
  - Chills [Unknown]

NARRATIVE: CASE EVENT DATE: 2016
